FAERS Safety Report 11658858 (Version 3)
Quarter: 2015Q4

REPORT INFORMATION
  Report Type: Spontaneous
  Country: SE (occurrence: SE)
  Receive Date: 20151026
  Receipt Date: 20151027
  Transmission Date: 20160304
  Serious: Yes (Other)
  Sender: FDA-Public Use
  Company Number: PHHY2015SE134344

PATIENT
  Age: 61 Year
  Sex: Male

DRUGS (1)
  1. METHADONE [Suspect]
     Active Substance: METHADONE HYDROCHLORIDE
     Indication: INTERCOSTAL NEURALGIA
     Dosage: 90 - 110 MG DAILY
     Route: 065

REACTIONS (2)
  - Growth hormone deficiency [Recovering/Resolving]
  - Cognitive disorder [Recovering/Resolving]
